FAERS Safety Report 23640002 (Version 4)
Quarter: 2025Q1

REPORT INFORMATION
  Report Type: Spontaneous
  Country: US (occurrence: US)
  Receive Date: 20240316
  Receipt Date: 20250317
  Transmission Date: 20250409
  Serious: Yes (Hospitalization)
  Sender: SANOFI AVENTIS
  Company Number: US-SA-SAC20240312001189

PATIENT
  Age: 35 Year
  Sex: Female
  Weight: 58.05 kg

DRUGS (21)
  1. REZUROCK [Suspect]
     Active Substance: BELUMOSUDIL
     Indication: Acute lymphocytic leukaemia
     Dosage: 200 MG, BID
     Route: 048
     Dates: start: 202302
  2. REZUROCK [Suspect]
     Active Substance: BELUMOSUDIL
     Indication: Chronic graft versus host disease
  3. DEXAMETHASONE [Concomitant]
     Active Substance: DEXAMETHASONE
  4. BUSPIRONE [Concomitant]
     Active Substance: BUSPIRONE HYDROCHLORIDE
  5. PANTOPRAZOLE [Concomitant]
     Active Substance: PANTOPRAZOLE
  6. BUDESONIDE [Concomitant]
     Active Substance: BUDESONIDE
  7. ACYCLOVIR [Concomitant]
     Active Substance: ACYCLOVIR
  8. FERROUS SULFATE [Concomitant]
     Active Substance: FERROUS SULFATE
  9. LINEZOLID [Concomitant]
     Active Substance: LINEZOLID
  10. LOPERAMIDE [Concomitant]
     Active Substance: LOPERAMIDE
  11. MAGNESIUM OXIDE [Concomitant]
     Active Substance: MAGNESIUM OXIDE
  12. MINOCYCLINE [Concomitant]
     Active Substance: MINOCYCLINE HYDROCHLORIDE
  13. MIRTAZAPINE [Concomitant]
     Active Substance: MIRTAZAPINE
  14. OLANZAPINE [Concomitant]
     Active Substance: OLANZAPINE
  15. OXYCODONE [Concomitant]
     Active Substance: OXYCODONE
  16. PEPCID [Concomitant]
     Active Substance: FAMOTIDINE
  17. POTASSIUM IODIDE [Concomitant]
     Active Substance: POTASSIUM IODIDE
  18. PREDNISONE [Concomitant]
     Active Substance: PREDNISONE
  19. AZITHROMYCIN [Concomitant]
     Active Substance: AZITHROMYCIN
  20. POTASSIUM [Concomitant]
     Active Substance: POTASSIUM
  21. PROBIOTICS NOS [Concomitant]
     Active Substance: PROBIOTICS NOS

REACTIONS (5)
  - Pain in extremity [Recovering/Resolving]
  - Infection [Unknown]
  - Myalgia [Not Recovered/Not Resolved]
  - Product use in unapproved indication [Unknown]
  - Inappropriate schedule of product administration [Unknown]

NARRATIVE: CASE EVENT DATE: 20230201
